FAERS Safety Report 7576105-3 (Version None)
Quarter: 2011Q2

REPORT INFORMATION
  Report Type: 
  Country: None (occurrence: None)
  Receive Date: 20110623
  Receipt Date: 20110623
  Transmission Date: 20111010
  Serious: Yes (Other)
  Sender: FDA-Public Use
  Company Number: None

PATIENT
  Sex: Female
  Weight: 61.2356 kg

DRUGS (1)
  1. DEXAMETHASONE [Suspect]
     Indication: SINUSITIS
     Dosage: 5-21-11 3 BEFORE BREAKFAST 3 AFER SUPPER FOR 3 DAYS THEN 2 FOR 3 DAYS THEN 1 FOR 3 DAYS THEN 1 BEFOR
     Dates: start: 20110521, end: 20110530

REACTIONS (8)
  - FEELING JITTERY [None]
  - INSOMNIA [None]
  - DIZZINESS [None]
  - GAIT DISTURBANCE [None]
  - BLADDER PAIN [None]
  - ASTHENIA [None]
  - CHEST PAIN [None]
  - NAUSEA [None]
